FAERS Safety Report 19926037 (Version 1)
Quarter: 2021Q4

REPORT INFORMATION
  Report Type: Spontaneous
  Country: US (occurrence: US)
  Receive Date: 20211007
  Receipt Date: 20211007
  Transmission Date: 20220303
  Serious: Yes (Other)
  Sender: FDA-Public Use
  Company Number: US-SANOFI-00792995

PATIENT
  Age: 85 Year
  Sex: Female

DRUGS (1)
  1. LANTUS SOLOSTAR [Suspect]
     Active Substance: INSULIN GLARGINE
     Indication: Type 2 diabetes mellitus
     Dosage: 8-14 UNITS TWICE DAILY
     Route: 065

REACTIONS (7)
  - Renal failure [Unknown]
  - Gait inability [Unknown]
  - COVID-19 [Unknown]
  - Alopecia [Unknown]
  - Nail disorder [Unknown]
  - Visual impairment [Unknown]
  - Inappropriate schedule of product administration [Unknown]
